FAERS Safety Report 12658823 (Version 1)
Quarter: 2016Q3

REPORT INFORMATION
  Report Type: Spontaneous
  Country: US (occurrence: None)
  Receive Date: 20160816
  Receipt Date: 20160816
  Transmission Date: 20161109
  Serious: Yes (Other)
  Sender: FDA-Public Use
  Company Number: None

PATIENT
  Age: 68 Year
  Sex: Female

DRUGS (11)
  1. FENTANYL TRANSDERMAL SYSTEM [Concomitant]
     Active Substance: FENTANYL
  2. FUROSEMIDE. [Concomitant]
     Active Substance: FUROSEMIDE
  3. ? BACLOFEN ORAL [Suspect]
     Active Substance: BACLOFEN
     Indication: PSORIATIC ARTHROPATHY
     Dosage: 10 MG TITRATING DOSE UPW ORAL
     Route: 048
     Dates: start: 20160809, end: 20160815
  4. HYDROMORPHONE [Concomitant]
     Active Substance: HYDROMORPHONE
  5. GABAPENTIN. [Concomitant]
     Active Substance: GABAPENTIN
  6. POTASSIUM CHLORIDE. [Concomitant]
     Active Substance: POTASSIUM CHLORIDE
  7. VITAMIN D [Concomitant]
     Active Substance: CHOLECALCIFEROL
  8. PREDNISONE. [Concomitant]
     Active Substance: PREDNISONE
  9. LOSARTAN. [Concomitant]
     Active Substance: LOSARTAN
  10. FOLIC ACID. [Concomitant]
     Active Substance: FOLIC ACID
  11. ALPRAZOLAM. [Concomitant]
     Active Substance: ALPRAZOLAM

REACTIONS (2)
  - Nausea [None]
  - Weight decreased [None]

NARRATIVE: CASE EVENT DATE: 20160812
